FAERS Safety Report 5056360-4 (Version None)
Quarter: 2006Q3

REPORT INFORMATION
  Report Type: 
  Country: None (occurrence: None)
  Receive Date: 20060717
  Receipt Date: 20060710
  Transmission Date: 20061208
  Serious: Yes (Hospitalization, Other)
  Sender: FDA-Public Use
  Company Number: HQWYE516124MAY06

PATIENT
  Age: 50 Year
  Sex: Male

DRUGS (13)
  1. RAPAMUNE (SIROLIMUS, TABLET) LOT NO.: 2005P0566 [Suspect]
     Indication: PROPHYLAXIS AGAINST TRANSPLANT REJECTION
     Dosage: 5 MG 1X PER 1 DAY
     Route: 048
     Dates: start: 20060521
  2. MEPREDNISONE [Concomitant]
  3. MYCOPHENOLATE MOFETIL [Concomitant]
  4. ATENOLOL [Concomitant]
  5. ENALAPRIL MALEATE [Concomitant]
  6. ATORVASTATIN CALCIUM [Concomitant]
  7. BACTRIM [Concomitant]
  8. LEUCOVORIN CALCIUM [Concomitant]
  9. ALPRAZOLAM [Concomitant]
  10. OMEPRAZOLE [Concomitant]
  11. ASPIRIN TAB [Concomitant]
  12. DIPYRONE METAMIZOLE SODIUM) [Concomitant]
  13. HEPARIN [Concomitant]

REACTIONS (3)
  - DIARRHOEA [None]
  - PYREXIA [None]
  - SMALL INTESTINAL OBSTRUCTION [None]
